FAERS Safety Report 5010667-5 (Version None)
Quarter: 2006Q2

REPORT INFORMATION
  Report Type: 
  Country: None (occurrence: None)
  Receive Date: 20060516
  Receipt Date: 20060501
  Transmission Date: 20061013
  Serious: Yes (Other)
  Sender: FDA-Public Use
  Company Number: 2006BH009179

PATIENT
  Age: 75 Year
  Sex: Female

DRUGS (1)
  1. IMMUNE GLOBULIN INTRAVENOUS (HUMAN) [Suspect]
     Indication: NEUROPATHY
     Dosage: 0.4 GM;EVERY 4 WK;IV X 60 TREATMENTS
     Route: 042

REACTIONS (2)
  - BLINDNESS [None]
  - RETINAL INFARCTION [None]
